FAERS Safety Report 12975687 (Version 2)
Quarter: 2016Q4

REPORT INFORMATION
  Report Type: Report from Study
  Country: US (occurrence: US)
  Receive Date: 20161125
  Receipt Date: 20161213
  Transmission Date: 20170207
  Serious: Yes (Hospitalization, Other)
  Sender: FDA-Public Use
  Company Number: PHEH2013US006034

PATIENT
  Age: 51 Year
  Sex: Female
  Weight: 158 kg

DRUGS (5)
  1. KEPPRA [Concomitant]
     Active Substance: LEVETIRACETAM
     Indication: SEIZURE
     Route: 065
  2. GLEEVEC [Suspect]
     Active Substance: IMATINIB MESYLATE
     Dosage: 400 MG, UNK
     Route: 048
  3. GLEEVEC [Suspect]
     Active Substance: IMATINIB MESYLATE
     Dosage: 400 MG, ONCE DAILY
     Route: 048
  4. GLEEVEC [Suspect]
     Active Substance: IMATINIB MESYLATE
     Dosage: 100 MG, QD
     Route: 048
  5. GLEEVEC [Suspect]
     Active Substance: IMATINIB MESYLATE
     Indication: CHRONIC MYELOID LEUKAEMIA
     Dosage: 200 MG, QD
     Route: 048
     Dates: start: 20121025

REACTIONS (29)
  - Polychromasia [Unknown]
  - Mean cell volume increased [Unknown]
  - Blood phosphorus decreased [Unknown]
  - Blood calcium decreased [Unknown]
  - Hepatitis C [Unknown]
  - Red blood cell target cells present [Unknown]
  - Hepatic cirrhosis [Unknown]
  - Protein total decreased [Unknown]
  - Platelet count decreased [Unknown]
  - Aneurysm [Unknown]
  - White blood cell count increased [Unknown]
  - Muscle spasms [Unknown]
  - Red cell distribution width increased [Unknown]
  - Aspartate aminotransferase increased [Unknown]
  - Haematocrit decreased [Unknown]
  - Malaise [Unknown]
  - Haemoglobin decreased [Unknown]
  - Blood albumin decreased [Unknown]
  - Blood bilirubin increased [Unknown]
  - Red blood cell count decreased [Unknown]
  - Encephalopathy [Unknown]
  - Cirrhosis alcoholic [Unknown]
  - Rash [Unknown]
  - Anisocytosis [Unknown]
  - Monocyte count increased [Unknown]
  - Glomerular filtration rate decreased [Unknown]
  - Hypochromasia [Unknown]
  - Arteriovenous malformation [Unknown]
  - Haemorrhage intracranial [Recovered/Resolved]

NARRATIVE: CASE EVENT DATE: 20131122
